FAERS Safety Report 6918494-6 (Version None)
Quarter: 2010Q3

REPORT INFORMATION
  Report Type: 
  Country: None (occurrence: None)
  Receive Date: 20100811
  Receipt Date: 20100622
  Transmission Date: 20110219
  Serious: Yes (Hospitalization, Other)
  Sender: FDA-Public Use
  Company Number: US-BAYER-201025798NA

PATIENT
  Age: 48 Year
  Sex: Female

DRUGS (21)
  1. AVELOX [Suspect]
     Indication: PNEUMONIA
     Dosage: UNIT DOSE: 400 MG
     Route: 048
     Dates: start: 20090116, end: 20090123
  2. ACETAMINOPHEN [Suspect]
     Indication: PRODUCT USED FOR UNKNOWN INDICATION
     Dosage: TOTAL DAILY DOSE: 4 G
     Dates: start: 20090101, end: 20090123
  3. SIMVASTATIN [Concomitant]
     Dates: end: 20090123
  4. PROPOXYPHENE HCL AND ACETAMINOPHEN [Concomitant]
  5. ALPRAZOLAM [Concomitant]
  6. LEVOTHYROXINE [Concomitant]
  7. HYDROCHLOROTHIAZIDE [Concomitant]
  8. SERTRALINE HYDROCHLORIDE [Concomitant]
  9. NASONEX [Concomitant]
  10. ASMANEX TWISTHALER [Concomitant]
  11. PREVACID [Concomitant]
  12. FEXOFENADINE [Concomitant]
  13. ZOLPIDEM [Concomitant]
  14. CYCLOBENZAPRINE [Concomitant]
  15. SULFAMETHOXAZOLE AND TRIMETHOPRIM [Concomitant]
     Dates: start: 20080728
  16. MUCINEX [Concomitant]
     Indication: PNEUMONIA
     Dates: start: 20090116
  17. MUCOMYST [Concomitant]
  18. PROGRAF [Concomitant]
  19. PROGRAF [Concomitant]
     Dosage: DOSE REDUCED
     Dates: start: 20090201
  20. CELLCEPT [Concomitant]
  21. BACTRIM [Concomitant]
     Dates: end: 20090201

REACTIONS (21)
  - ABDOMINAL WALL ABSCESS [None]
  - ACUTE HEPATIC FAILURE [None]
  - ASTHENIA [None]
  - BACK PAIN [None]
  - CHOLESTASIS [None]
  - CHROMATURIA [None]
  - COAGULOPATHY [None]
  - CONFUSIONAL STATE [None]
  - DIARRHOEA [None]
  - ENCEPHALOPATHY [None]
  - FATIGUE [None]
  - FUNGAL SKIN INFECTION [None]
  - JAUNDICE [None]
  - KIDNEY INFECTION [None]
  - OCULAR ICTERUS [None]
  - PAIN [None]
  - PRURITUS [None]
  - RENAL FAILURE [None]
  - SOMNOLENCE [None]
  - TRANSPLANT FAILURE [None]
  - URINE OUTPUT DECREASED [None]
